FAERS Safety Report 12641292 (Version 1)
Quarter: 2016Q3

REPORT INFORMATION
  Report Type: Spontaneous
  Country: US (occurrence: US)
  Receive Date: 20160810
  Receipt Date: 20160810
  Transmission Date: 20161109
  Serious: No
  Sender: FDA-Public Use
  Company Number: US-PFIZER INC-2016375152

PATIENT
  Sex: Male

DRUGS (3)
  1. VITAMIN E [Concomitant]
     Active Substance: .ALPHA.-TOCOPHEROL
     Dosage: UNK
  2. OXYTOCIN. [Concomitant]
     Active Substance: OXYTOCIN
     Dosage: UNK
  3. INLYTA [Suspect]
     Active Substance: AXITINIB
     Indication: RENAL CANCER
     Dosage: 5 MG, 2X/DAY(EVERY 12 HOURS)
     Route: 048

REACTIONS (1)
  - Rash [Unknown]
